FAERS Safety Report 22228769 (Version 4)
Quarter: 2023Q4

REPORT INFORMATION
  Report Type: Spontaneous
  Country: CA (occurrence: CA)
  Receive Date: 20230419
  Receipt Date: 20231201
  Transmission Date: 20240110
  Serious: Yes (Hospitalization, Other)
  Sender: FDA-Public Use
  Company Number: CA-AstraZeneca-2023A084550

PATIENT
  Age: 76 Year
  Sex: Female

DRUGS (1)
  1. TRASTUZUMAB DERUXTECAN [Suspect]
     Active Substance: TRASTUZUMAB DERUXTECAN
     Indication: HER2 positive breast cancer
     Dosage: 357 MG ONCE EVERY 3 WK
     Route: 042

REACTIONS (6)
  - Cyst [Unknown]
  - Sepsis [Unknown]
  - Product dose omission issue [Unknown]
  - Haematological infection [Unknown]
  - Malignant neoplasm progression [Unknown]
  - Toxicity to various agents [Unknown]
